APPROVED DRUG PRODUCT: ANGELIQ
Active Ingredient: DROSPIRENONE; ESTRADIOL
Strength: 0.5MG;1MG
Dosage Form/Route: TABLET;ORAL
Application: N021355 | Product #002 | TE Code: AB
Applicant: BAYER HEALTHCARE PHARMACEUTICALS INC
Approved: Sep 28, 2005 | RLD: Yes | RS: Yes | Type: RX